FAERS Safety Report 8052999-2 (Version None)
Quarter: 2012Q1

REPORT INFORMATION
  Report Type: 
  Country: None (occurrence: None)
  Receive Date: 20120118
  Receipt Date: 20120110
  Transmission Date: 20120608
  Serious: No
  Sender: FDA-Public Use
  Company Number: US-CELGENEUS-163-20785-11092724

PATIENT
  Sex: Male

DRUGS (17)
  1. LIDOCAINE [Concomitant]
     Dosage: 2.5-2.55
     Route: 065
  2. TEMOZOLOMIDE [Concomitant]
     Dosage: 100 MILLIGRAM
     Route: 048
  3. SODIUM CHLORIDE [Concomitant]
     Dosage: 3 PERCENT
     Route: 048
  4. CELEXA [Concomitant]
     Indication: ANTIDEPRESSANT THERAPY
     Dosage: 1 AND 1/2
     Route: 048
  5. THALOMID [Suspect]
     Dosage: 200 MILLIGRAM
     Route: 048
     Dates: start: 20110429, end: 20110513
  6. OMEPRAZOLE [Concomitant]
     Indication: NAUSEA
     Dosage: 40 MILLIGRAM
     Route: 048
  7. THALOMID [Suspect]
     Dosage: 200 MILLIGRAM
     Route: 048
     Dates: start: 20110101, end: 20110916
  8. ASTEPRO [Concomitant]
     Dosage: 205.5 MICROGRAM
     Route: 045
  9. ATIVAN [Concomitant]
     Dosage: .5 MILLIGRAM
     Route: 048
  10. METHYLIN [Concomitant]
     Dosage: 10 MILLIGRAM
     Route: 048
  11. PROAIR HFA [Concomitant]
     Dosage: 2 PUFF
     Route: 055
  12. AMBIEN CR [Concomitant]
     Dosage: 12.5 MILLIGRAM
     Route: 048
  13. KEPPRA [Concomitant]
     Dosage: 1000 MILLIGRAM
     Route: 048
  14. ARMODAFINIL [Concomitant]
     Indication: ANTIFUNGAL PROPHYLAXIS
     Dosage: 200 MILLIGRAM
     Route: 048
  15. CYCLOPHOSPHAMIDE [Concomitant]
     Dosage: 2(1MG/KG)
     Route: 048
  16. NORVASC [Concomitant]
     Indication: HYPERTENSION
     Dosage: 10 MILLIGRAM
     Route: 048
  17. REGLAN [Concomitant]
     Indication: NAUSEA
     Dosage: 10 MILLIGRAM
     Route: 048

REACTIONS (1)
  - DERMATITIS CONTACT [None]
